FAERS Safety Report 5600756-6 (Version None)
Quarter: 2008Q1

REPORT INFORMATION
  Report Type: 
  Country: None (occurrence: None)
  Receive Date: 20080123
  Receipt Date: 20080112
  Transmission Date: 20080703
  Serious: Yes (Other)
  Sender: FDA-Public Use
  Company Number: US-PFIZER INC-2007095532

PATIENT
  Sex: Female

DRUGS (17)
  1. SUTENT [Suspect]
     Indication: RENAL CELL CARCINOMA
  2. OSCAL [Concomitant]
  3. NEURONTIN [Concomitant]
  4. PRILOSEC [Concomitant]
  5. CARAFATE [Concomitant]
  6. ASPIRIN [Concomitant]
  7. DARVOCET [Concomitant]
  8. POTASSIUM CHLORIDE [Concomitant]
  9. METOPROLOL TARTRATE [Concomitant]
  10. PREDNISONE [Concomitant]
  11. ACTONEL [Concomitant]
  12. DIGOXIN [Concomitant]
  13. INSULIN [Concomitant]
  14. FLONASE [Concomitant]
  15. CLARINEX [Concomitant]
  16. LASIX [Concomitant]
  17. FEOSOL [Concomitant]

REACTIONS (6)
  - ATRIOVENTRICULAR BLOCK FIRST DEGREE [None]
  - BRADYCARDIA [None]
  - ELECTROCARDIOGRAM QT PROLONGED [None]
  - ELECTROCARDIOGRAM ST-T SEGMENT ABNORMAL [None]
  - LEFT VENTRICULAR HYPERTROPHY [None]
  - MYOCARDIAL ISCHAEMIA [None]
